FAERS Safety Report 17844087 (Version 1)
Quarter: 2020Q2

REPORT INFORMATION
  Report Type: Spontaneous
  Country: US (occurrence: US)
  Receive Date: 20200601
  Receipt Date: 20200601
  Transmission Date: 20200714
  Serious: Yes (Hospitalization, Other)
  Sender: FDA-Public Use
  Company Number: US-DRREDDYS-USA/USA/20/0123509

PATIENT
  Age: 9 Year
  Sex: Female

DRUGS (3)
  1. SIROLIMUS. [Suspect]
     Active Substance: SIROLIMUS
     Indication: IMMUNOSUPPRESSANT DRUG THERAPY
     Route: 065
  2. TACROLIMUS. [Suspect]
     Active Substance: TACROLIMUS
     Route: 065
  3. TACROLIMUS. [Suspect]
     Active Substance: TACROLIMUS
     Indication: IMMUNOSUPPRESSANT DRUG THERAPY
     Route: 065

REACTIONS (17)
  - Bacillary angiomatosis [Recovered/Resolved]
  - Jarisch-Herxheimer reaction [Recovered/Resolved]
  - Inflammation [Recovered/Resolved]
  - Microcytic anaemia [Recovered/Resolved]
  - Pleural effusion [Recovered/Resolved]
  - Hypocalcaemia [Recovered/Resolved]
  - Lymphopenia [Recovered/Resolved]
  - Cat scratch disease [Recovered/Resolved]
  - Ascites [Recovered/Resolved]
  - Hepatomegaly [Recovered/Resolved]
  - Reticulocyte count decreased [Recovered/Resolved]
  - Pulmonary oedema [Recovered/Resolved]
  - Abdominal discomfort [Recovered/Resolved]
  - Hypoalbuminaemia [Recovered/Resolved]
  - Thrombocytopenia [Recovered/Resolved]
  - Bone marrow failure [Recovered/Resolved]
  - Respiratory distress [Recovered/Resolved]
